FAERS Safety Report 6682010-7 (Version None)
Quarter: 2010Q2

REPORT INFORMATION
  Report Type: 
  Country: None (occurrence: None)
  Receive Date: 20100414
  Receipt Date: 20100414
  Transmission Date: 20101027
  Serious: Yes (Hospitalization, Disabling)
  Sender: FDA-Public Use
  Company Number: None

PATIENT
  Age: 82 Year
  Sex: Female
  Weight: 68.0396 kg

DRUGS (1)
  1. FOSAMAX [Suspect]
     Indication: OSTEOPOROSIS
     Dosage: ONE PILL ONCE WEEKLY PO
     Route: 048
     Dates: start: 19980101, end: 20080101

REACTIONS (3)
  - IMPAIRED HEALING [None]
  - OSTEOGENESIS IMPERFECTA [None]
  - STRESS FRACTURE [None]
